FAERS Safety Report 10756270 (Version 1)
Quarter: 2015Q1

REPORT INFORMATION
  Report Type: Spontaneous
  Country: US (occurrence: US)
  Receive Date: 20150202
  Receipt Date: 20150202
  Transmission Date: 20150721
  Serious: Yes (Hospitalization)
  Sender: FDA-Public Use
  Company Number: GXBR2015US000630

PATIENT
  Age: 26 Year
  Sex: Male

DRUGS (9)
  1. DILAUDID [Suspect]
     Active Substance: HYDROMORPHONE HYDROCHLORIDE
     Indication: BACK PAIN
     Dosage: UNK MG, UNK
     Route: 065
     Dates: start: 20110921, end: 20111221
  2. FIORICET [Suspect]
     Active Substance: ACETAMINOPHEN\BUTALBITAL\CAFFEINE
     Indication: BACK PAIN
     Dosage: UNK MG, UNK
     Route: 065
     Dates: start: 20110921, end: 20111221
  3. TRAZODONE HYDROCHLORIDE. [Suspect]
     Active Substance: TRAZODONE HYDROCHLORIDE
     Indication: BACK PAIN
     Dosage: UNK MG, UNK
     Route: 065
     Dates: start: 20110921, end: 20111221
  4. HEROIN [Suspect]
     Active Substance: DIACETYLMORPHINE
     Indication: PRODUCT USED FOR UNKNOWN INDICATION
     Dosage: UNK DF, UNK
     Route: 065
  5. OXYCODONE [Suspect]
     Active Substance: OXYCODONE
     Indication: BACK PAIN
     Dosage: UNK MG, UNK
     Route: 065
     Dates: start: 20110921, end: 20111221
  6. SOMA [Suspect]
     Active Substance: CARISOPRODOL
     Indication: BACK PAIN
     Dosage: UNK MG, UNK
     Route: 065
     Dates: start: 20110921, end: 20111221
  7. CLONAZEPAM. [Suspect]
     Active Substance: CLONAZEPAM
     Indication: BACK PAIN
     Dosage: UNK MG, UNK
     Route: 065
     Dates: start: 20110921, end: 20111221
  8. METHADONE [Suspect]
     Active Substance: METHADONE HYDROCHLORIDE
     Indication: BACK PAIN
     Dosage: UNK MG, UNK
     Route: 065
     Dates: start: 20110921, end: 20111221
  9. MORPHINE [Suspect]
     Active Substance: MORPHINE
     Indication: BACK PAIN
     Dosage: UNK MG, UNK
     Route: 065
     Dates: start: 20110921, end: 20111221

REACTIONS (2)
  - Drug dependence [Unknown]
  - Post-traumatic stress disorder [Unknown]
